FAERS Safety Report 19058133 (Version 2)
Quarter: 2021Q2

REPORT INFORMATION
  Report Type: Spontaneous
  Country: JP (occurrence: JP)
  Receive Date: 20210324
  Receipt Date: 20210406
  Transmission Date: 20210717
  Serious: Yes (Other)
  Sender: FDA-Public Use
  Company Number: JP-SEAGEN-2021SGN01731

PATIENT
  Age: 7 Decade

DRUGS (1)
  1. ADCETRIS [Suspect]
     Active Substance: BRENTUXIMAB VEDOTIN
     Indication: HODGKIN^S DISEASE RECURRENT
     Dosage: 1.8 MILLIGRAM/KILOGRAM
     Route: 042
     Dates: start: 202011

REACTIONS (3)
  - Neuropathy peripheral [Not Recovered/Not Resolved]
  - Hodgkin^s disease recurrent [Not Recovered/Not Resolved]
  - Disease progression [Not Recovered/Not Resolved]

NARRATIVE: CASE EVENT DATE: 202102
